FAERS Safety Report 10668877 (Version 1)
Quarter: 2014Q4

REPORT INFORMATION
  Report Type: Spontaneous
  Country: IT (occurrence: IT)
  Receive Date: 20141222
  Receipt Date: 20141222
  Transmission Date: 20150529
  Serious: Yes (Hospitalization)
  Sender: FDA-Public Use
  Company Number: IT-009507513-1412ITA009563

PATIENT
  Age: 47 Year
  Sex: Female

DRUGS (3)
  1. MAXALT [Suspect]
     Active Substance: RIZATRIPTAN BENZOATE
     Dosage: FOR TWO TIMES, DATES UNSPECIFIED
     Route: 048
  2. MAXALT [Suspect]
     Active Substance: RIZATRIPTAN BENZOATE
     Indication: MIGRAINE
     Dosage: 10 MG, QD
     Route: 048
     Dates: start: 20141009, end: 20141009
  3. FLUTICASONE PROPIONATE (+) SALMETEROL XINAFOATE [Concomitant]
     Active Substance: FLUTICASONE PROPIONATE\SALMETEROL XINAFOATE

REACTIONS (6)
  - Loss of consciousness [Recovered/Resolved]
  - Dyspnoea [Recovered/Resolved]
  - Abdominal pain upper [Recovered/Resolved]
  - Hyperhidrosis [Recovered/Resolved]
  - Nausea [Recovered/Resolved]
  - Vomiting [Recovered/Resolved]

NARRATIVE: CASE EVENT DATE: 20141009
